FAERS Safety Report 5562995-2 (Version None)
Quarter: 2007Q4

REPORT INFORMATION
  Report Type: 
  Country: None (occurrence: None)
  Receive Date: 20071217
  Receipt Date: 20071205
  Transmission Date: 20080405
  Serious: Yes (Hospitalization)
  Sender: FDA-Public Use
  Company Number: US-BAYER-200713996BCC

PATIENT
  Age: 36 Year
  Sex: Female
  Weight: 132 kg

DRUGS (16)
  1. ALKA-SELTZER MORNING RELIEF EFFERVESCENT [Suspect]
     Indication: NASOPHARYNGITIS
     Route: 048
  2. ALKA-SELTZER REGULAR EFFERVESCENT [Suspect]
     Indication: NASOPHARYNGITIS
     Route: 048
     Dates: start: 19760101
  3. ALKA-SELTZER ORIGINAL EFFERVESCENT [Suspect]
     Indication: NASOPHARYNGITIS
     Route: 048
  4. POTASSIUM CHLORIDE [Concomitant]
  5. PLAVIX [Concomitant]
  6. LASIX [Concomitant]
  7. GLYBURIDE [Concomitant]
  8. HUMULIN 70/30 [Concomitant]
  9. ISOSORBIDE DINITRATE [Concomitant]
  10. DILTIAZEM [Concomitant]
  11. SYNTHROID [Concomitant]
     Indication: THYROID DISORDER
  12. LORTAB [Concomitant]
  13. SOMA [Concomitant]
  14. DOXYCYCLINE [Concomitant]
  15. FLUCONAZOLE [Concomitant]
  16. MECLIZINE [Concomitant]

REACTIONS (5)
  - ASTHMA [None]
  - CELLULITIS [None]
  - DIZZINESS [None]
  - FLATULENCE [None]
  - VOMITING [None]
